FAERS Safety Report 13010989 (Version 1)
Quarter: 2016Q4

REPORT INFORMATION
  Report Type: Spontaneous
  Country: IE (occurrence: IE)
  Receive Date: 20161208
  Receipt Date: 20161208
  Transmission Date: 20170207
  Serious: Yes (Other)
  Sender: FDA-Public Use
  Company Number: IE-ABBVIE-16P-229-1805663-00

PATIENT
  Age: 6 Month
  Sex: Female

DRUGS (1)
  1. KLACID [Suspect]
     Active Substance: CLARITHROMYCIN
     Indication: MATERNAL EXPOSURE TIMING UNSPECIFIED
     Route: 063

REACTIONS (4)
  - Exposure during breast feeding [Unknown]
  - Abdominal pain [Unknown]
  - Muscle rigidity [Unknown]
  - Crying [Unknown]

NARRATIVE: CASE EVENT DATE: 20161003
